FAERS Safety Report 10019231 (Version 1)
Quarter: 2014Q1

REPORT INFORMATION
  Report Type: Spontaneous
  Country: US (occurrence: None)
  Receive Date: 20140314
  Receipt Date: 20140314
  Transmission Date: 20141002
  Serious: No
  Sender: FDA-Public Use
  Company Number: None

PATIENT
  Age: 36 Year
  Sex: Male
  Weight: 160.9 kg

DRUGS (3)
  1. FENTANYL [Suspect]
     Indication: PNEUMONIA
     Dosage: 1  IV-PCA
     Route: 042
     Dates: start: 20140120
  2. FENTANYL [Suspect]
     Indication: RHABDOMYOLYSIS
     Dosage: 1  IV-PCA
     Route: 042
     Dates: start: 20140120
  3. ALARIS [Concomitant]

REACTIONS (1)
  - Device malfunction [None]
